FAERS Safety Report 25359293 (Version 3)
Quarter: 2025Q2

REPORT INFORMATION
  Report Type: Report from Study
  Country: NL (occurrence: NL)
  Receive Date: 20250526
  Receipt Date: 20250610
  Transmission Date: 20250717
  Serious: Yes (Death, Other)
  Sender: VERITY PHARMACEUTICALS INC.
  Company Number: NL-VER-202500045

PATIENT
  Age: 70 Year
  Sex: Male

DRUGS (2)
  1. TRIPTORELIN PAMOATE [Suspect]
     Active Substance: TRIPTORELIN PAMOATE
     Indication: Prostate cancer
     Route: 030
     Dates: start: 20240409, end: 20240409
  2. TRIPTORELIN PAMOATE [Suspect]
     Active Substance: TRIPTORELIN PAMOATE
     Indication: Prostate cancer
     Route: 030
     Dates: start: 20250327

REACTIONS (3)
  - Off label use [Unknown]
  - Illness [Unknown]
  - Death [Fatal]

NARRATIVE: CASE EVENT DATE: 20250327
